FAERS Safety Report 5588571-3 (Version None)
Quarter: 2008Q1

REPORT INFORMATION
  Report Type: 
  Country: None (occurrence: None)
  Receive Date: 20080111
  Receipt Date: 20071102
  Transmission Date: 20080703
  Serious: Yes (Other)
  Sender: FDA-Public Use
  Company Number: US-SANOFI-SYNTHELABO-A03200706287

PATIENT
  Sex: Male

DRUGS (3)
  1. VALIUM [Suspect]
     Indication: ANXIETY DISORDER
     Dosage: UNK
     Route: 048
  2. TRAZODONE HCL [Suspect]
     Indication: ANTIDEPRESSANT THERAPY
     Dosage: UNK
     Route: 048
  3. AMBIEN [Suspect]
     Indication: DRUG USE FOR UNKNOWN INDICATION
     Dosage: UNK
     Route: 048

REACTIONS (2)
  - FEELING ABNORMAL [None]
  - HOMICIDE [None]
